FAERS Safety Report 18908883 (Version 1)
Quarter: 2021Q1

REPORT INFORMATION
  Report Type: Spontaneous
  Country: US (occurrence: US)
  Receive Date: 20210218
  Receipt Date: 20210218
  Transmission Date: 20210420
  Serious: No
  Sender: FDA-Public Use
  Company Number: US-BAUSCH-BL-2021-005558

PATIENT
  Age: 84 Year
  Sex: Female

DRUGS (7)
  1. XIFAXAN [Suspect]
     Active Substance: RIFAXIMIN
     Indication: PRODUCT USE IN UNAPPROVED INDICATION
  2. BENEFIBER [Suspect]
     Active Substance: STARCH, WHEAT
     Indication: IRRITABLE BOWEL SYNDROME
     Dosage: AS DIRECTED
     Route: 048
     Dates: start: 20210211
  3. IBGARD [Suspect]
     Active Substance: PEPPERMINT OIL
     Indication: IRRITABLE BOWEL SYNDROME
     Dosage: AS DIRECTED
     Route: 048
     Dates: start: 20210211
  4. IBGARD [Suspect]
     Active Substance: PEPPERMINT OIL
     Indication: ABDOMINAL DISTENSION
  5. BENEFIBER [Suspect]
     Active Substance: STARCH, WHEAT
     Indication: ABDOMINAL DISTENSION
  6. XIFAXAN [Suspect]
     Active Substance: RIFAXIMIN
     Indication: IRRITABLE BOWEL SYNDROME
     Route: 048
     Dates: start: 20210211
  7. XIFAXAN [Suspect]
     Active Substance: RIFAXIMIN
     Indication: ABDOMINAL DISTENSION

REACTIONS (4)
  - Ocular hyperaemia [Unknown]
  - Product use in unapproved indication [Unknown]
  - Product prescribing error [Unknown]
  - Foreign body sensation in eyes [Unknown]

NARRATIVE: CASE EVENT DATE: 20210210
